FAERS Safety Report 21344429 (Version 1)
Quarter: 2022Q3

REPORT INFORMATION
  Report Type: Other
  Country: US (occurrence: US)
  Receive Date: 20220916
  Receipt Date: 20220916
  Transmission Date: 20221027
  Serious: Yes (Hospitalization)
  Sender: FDA-Public Use
  Company Number: US-LEADIANT GMBH-2022STPI000230

PATIENT
  Sex: Male

DRUGS (1)
  1. MATULANE [Suspect]
     Active Substance: PROCARBAZINE HYDROCHLORIDE
     Indication: Brain neoplasm
     Dosage: 50 MILLIGRAM, TAKE 4 CAPSULES DAILY FOR 7 DOSES ON DAYS 2 THROUGH 8 OF EACH CHEMO CYCLE
     Route: 048
     Dates: start: 20220128

REACTIONS (1)
  - Meningitis [Unknown]
